FAERS Safety Report 4277893-4 (Version None)
Quarter: 2004Q1

REPORT INFORMATION
  Report Type: 
  Country: None (occurrence: None)
  Receive Date: 20040121
  Receipt Date: 20030211
  Transmission Date: 20041129
  Serious: Yes (Hospitalization)
  Sender: FDA-Public Use
  Company Number: 2003-02-1072

PATIENT
  Age: 1 Day
  Sex: Male
  Weight: 3.4 kg

DRUGS (1)
  1. SUBUTEX [Suspect]
     Indication: ILL-DEFINED DISORDER
     Route: 060
     Dates: start: 20020101, end: 20020101

REACTIONS (6)
  - DRUG WITHDRAWAL SYNDROME NEONATAL [None]
  - HIGH-PITCHED CRYING [None]
  - INSOMNIA [None]
  - MYOCLONUS [None]
  - TENSION [None]
  - TREMOR [None]
